FAERS Safety Report 25201104 (Version 3)
Quarter: 2025Q4

REPORT INFORMATION
  Report Type: Spontaneous
  Country: EU (occurrence: EU)
  Receive Date: 20250416
  Receipt Date: 20251205
  Transmission Date: 20260118
  Serious: Yes (Hospitalization, Other)
  Sender: NOVARTIS
  Company Number: None

PATIENT
  Age: 25 Year
  Sex: Female

DRUGS (2)
  1. GILENYA [Suspect]
     Active Substance: FINGOLIMOD HYDROCHLORIDE
     Indication: Relapsing-remitting multiple sclerosis
     Dosage: 1 DOSAGE FORM
     Route: 048
     Dates: start: 202007, end: 20241225
  2. OCREVUS [Suspect]
     Active Substance: OCRELIZUMAB
     Indication: Contraception
     Dosage: 300 MG
     Route: 042
     Dates: start: 20240131, end: 20240214

REACTIONS (3)
  - Threatened labour [Recovered/Resolved]
  - Maternal exposure during pregnancy [Unknown]
  - Maternal exposure before pregnancy [Unknown]

NARRATIVE: CASE EVENT DATE: 20240910
